FAERS Safety Report 10449330 (Version 1)
Quarter: 2014Q3

REPORT INFORMATION
  Report Type: Spontaneous
  Country: JP (occurrence: JP)
  Receive Date: 20140912
  Receipt Date: 20140912
  Transmission Date: 20150326
  Serious: Yes (Death, Other)
  Sender: FDA-Public Use
  Company Number: PHHY2014JP116910

PATIENT
  Age: 54 Year
  Sex: Female

DRUGS (4)
  1. PACLITAXEL. [Concomitant]
     Active Substance: PACLITAXEL
     Route: 041
  2. ZOMETA [Suspect]
     Active Substance: ZOLEDRONIC ACID
     Indication: BREAST CANCER
  3. BEVACIZUMAB [Concomitant]
     Active Substance: BEVACIZUMAB
     Route: 041
  4. ZOMETA [Suspect]
     Active Substance: ZOLEDRONIC ACID
     Indication: METASTASES TO BONE
     Dosage: 4 MG, UNK
     Route: 041
     Dates: start: 20120720

REACTIONS (11)
  - Gingival erythema [Unknown]
  - Tenderness [Unknown]
  - Osteonecrosis of jaw [Unknown]
  - Gingivitis [Unknown]
  - Breast cancer [Fatal]
  - Pathological fracture [Unknown]
  - Malignant neoplasm progression [Fatal]
  - Gingival swelling [Unknown]
  - Pain in jaw [Unknown]
  - Exposed bone in jaw [Unknown]
  - Condition aggravated [Unknown]

NARRATIVE: CASE EVENT DATE: 20131120
